FAERS Safety Report 8599305-2 (Version None)
Quarter: 2012Q3

REPORT INFORMATION
  Report Type: 
  Country: None (occurrence: None)
  Receive Date: 20120816
  Receipt Date: 20120705
  Transmission Date: 20120928
  Serious: No
  Sender: FDA-Public Use
  Company Number: US-AMGEN-USASP2012041529

PATIENT
  Age: 58 Year
  Sex: Male

DRUGS (4)
  1. NEUPOGEN [Suspect]
     Dosage: 300 MUG, UNK
  2. NEUPOGEN [Suspect]
     Indication: PANCREATIC CARCINOMA
     Dosage: 480 MUG, QD
     Dates: start: 20120624
  3. PACLITAXEL [Concomitant]
     Indication: PANCREATIC CARCINOMA
     Dosage: UNK
  4. GEMCITABINE HYDROCHLORIDE [Concomitant]
     Indication: PANCREATIC CARCINOMA
     Dosage: UNK

REACTIONS (3)
  - INJECTION SITE PAIN [None]
  - WHITE BLOOD CELL COUNT DECREASED [None]
  - MUSCLE SPASMS [None]
